FAERS Safety Report 23248027 (Version 2)
Quarter: 2023Q4

REPORT INFORMATION
  Report Type: Other
  Country: CA (occurrence: None)
  Receive Date: 20231130
  Receipt Date: 20231211
  Transmission Date: 20240109
  Serious: No
  Sender: FDA-Public Use
  Company Number: CA-ROCHE-3108029

PATIENT
  Age: 38 Year
  Sex: Female

DRUGS (1)
  1. OCREVUS [Suspect]
     Active Substance: OCRELIZUMAB
     Indication: Relapsing-remitting multiple sclerosis
     Dosage: THEN 600 MG EVERY 6 MONTH
     Route: 042
     Dates: start: 20220423

REACTIONS (26)
  - Fatigue [Not Recovered/Not Resolved]
  - Back pain [Unknown]
  - Lung disorder [Unknown]
  - Arthralgia [Unknown]
  - Rash [Unknown]
  - Dizziness [Unknown]
  - Muscle spasms [Unknown]
  - Somnolence [Unknown]
  - Pyrexia [Unknown]
  - Nasopharyngitis [Unknown]
  - Asthenia [Unknown]
  - Speech disorder [Not Recovered/Not Resolved]
  - Nervousness [Not Recovered/Not Resolved]
  - Sensation of foreign body [Recovered/Resolved]
  - Pain in jaw [Recovered/Resolved]
  - Peroneal nerve palsy [Unknown]
  - Influenza [Recovered/Resolved]
  - Vertigo [Recovering/Resolving]
  - Headache [Recovered/Resolved]
  - Abdominal pain upper [Recovering/Resolving]
  - Vomiting [Recovered/Resolved]
  - Nasal congestion [Recovered/Resolved]
  - Fall [Unknown]
  - Depression [Unknown]
  - Illness [Unknown]
  - Head injury [Unknown]

NARRATIVE: CASE EVENT DATE: 20231110
